FAERS Safety Report 23141411 (Version 1)
Quarter: 2023Q4

REPORT INFORMATION
  Report Type: Report from Study
  Country: US (occurrence: US)
  Receive Date: 20231103
  Receipt Date: 20231103
  Transmission Date: 20240109
  Serious: Yes (Hospitalization, Other)
  Sender: FDA-Public Use
  Company Number: US-002147023-NVSC2023US027703

PATIENT
  Sex: Male
  Weight: 53.968 kg

DRUGS (8)
  1. REMODULIN [Suspect]
     Active Substance: TREPROSTINIL
     Indication: Product used for unknown indication
     Dosage: UNK
     Route: 065
  2. TREPROSTINIL [Suspect]
     Active Substance: TREPROSTINIL
     Indication: Pulmonary arterial hypertension
     Dosage: 48 NG/KG/MIN, CONT
     Route: 042
     Dates: start: 20190405
  3. TREPROSTINIL [Suspect]
     Active Substance: TREPROSTINIL
     Dosage: 53 NG/KG/MIN, CONT
     Route: 042
     Dates: start: 202210
  4. TREPROSTINIL [Suspect]
     Active Substance: TREPROSTINIL
     Dosage: 54 NG/KG/MIN, CONT
     Route: 042
  5. TREPROSTINIL [Suspect]
     Active Substance: TREPROSTINIL
     Dosage: 54 NG/KG/MIN, CONT
     Route: 042
     Dates: start: 20190405
  6. CLARITIN [Concomitant]
     Active Substance: LORATADINE
     Indication: Seasonal allergy
     Dosage: UNK
     Route: 065
  7. LETAIRIS [Concomitant]
     Active Substance: AMBRISENTAN
     Indication: Product used for unknown indication
     Dosage: UNK
     Route: 065
  8. REVATIO [Concomitant]
     Active Substance: SILDENAFIL CITRATE
     Indication: Product used for unknown indication
     Dosage: UNK
     Route: 065

REACTIONS (24)
  - Pneumonia [Unknown]
  - Fall [Unknown]
  - Back pain [Unknown]
  - Coronary artery disease [Unknown]
  - Respiratory failure [Unknown]
  - Dyspnoea [Unknown]
  - Fluid retention [Unknown]
  - Oedema peripheral [Unknown]
  - Back pain [Unknown]
  - Arthralgia [Unknown]
  - Chest pain [Unknown]
  - Fatigue [Unknown]
  - Dyspnoea [Unknown]
  - Pulmonary oedema [Unknown]
  - Weight decreased [Unknown]
  - Muscle mass [Unknown]
  - Feeling abnormal [Unknown]
  - Peripheral swelling [Unknown]
  - Oxygen saturation decreased [Unknown]
  - Blood iron decreased [Unknown]
  - Fatigue [Not Recovered/Not Resolved]
  - Vasodilatation [Unknown]
  - Pain in extremity [Not Recovered/Not Resolved]
  - Erythema [Not Recovered/Not Resolved]
